FAERS Safety Report 15949926 (Version 2)
Quarter: 2019Q3

REPORT INFORMATION
  Report Type: Spontaneous
  Country: US (occurrence: US)
  Receive Date: 20190211
  Receipt Date: 20190830
  Transmission Date: 20191004
  Serious: No
  Sender: FDA-Public Use
  Company Number: US-MYLANLABS-2019M1008071

PATIENT
  Sex: Female
  Weight: 64 kg

DRUGS (2)
  1. ESTRADIOL TRANSDERMAL SYSTEM [Suspect]
     Active Substance: ESTRADIOL
     Indication: HORMONE REPLACEMENT THERAPY
     Dosage: 0.075 MILLIGRAM
     Route: 062
  2. PROGESTERONE. [Concomitant]
     Active Substance: PROGESTERONE
     Dosage: UNK

REACTIONS (9)
  - Insomnia [Not Recovered/Not Resolved]
  - Pruritus [Not Recovered/Not Resolved]
  - Wrong technique in product usage process [Not Recovered/Not Resolved]
  - Drug ineffective [Unknown]
  - Feeling abnormal [Not Recovered/Not Resolved]
  - Hypersensitivity [Not Recovered/Not Resolved]
  - Application site rash [Not Recovered/Not Resolved]
  - Hot flush [Not Recovered/Not Resolved]
  - Erythema [Not Recovered/Not Resolved]
